FAERS Safety Report 7912999-7 (Version None)
Quarter: 2011Q4

REPORT INFORMATION
  Report Type: 
  Country: None (occurrence: None)
  Receive Date: 20111114
  Receipt Date: 20111109
  Transmission Date: 20120403
  Serious: Yes (Life-Threatening, Hospitalization, Other)
  Sender: FDA-Public Use
  Company Number: DE-BRISTOL-MYERS SQUIBB COMPANY-16145518

PATIENT
  Age: 74 Year
  Sex: Female
  Weight: 70 kg

DRUGS (1)
  1. YERVOY [Suspect]
     Indication: METASTATIC MALIGNANT MELANOMA
     Dosage: NO OF INFUSIONS:3,WEEK 7,INTERRUPTED ON 24AUG11,28SEP11
     Route: 042
     Dates: start: 20110803

REACTIONS (5)
  - COLITIS [None]
  - DIARRHOEA HAEMORRHAGIC [None]
  - INTESTINAL PERFORATION [None]
  - ILEUS [None]
  - PNEUMATOSIS INTESTINALIS [None]
